FAERS Safety Report 5343138-7 (Version None)
Quarter: 2007Q2

REPORT INFORMATION
  Report Type: 
  Country: None (occurrence: None)
  Receive Date: 20070416
  Receipt Date: 20070221
  Transmission Date: 20071010
  Serious: No
  Sender: FDA-Public Use
  Company Number: 2007SP000573

PATIENT
  Age: 83 Year
  Sex: Female
  Weight: 46.2669 kg

DRUGS (1)
  1. LUNESTA [Suspect]
     Indication: INSOMNIA
     Dosage: 2 MG;HS;ORAL
     Route: 048
     Dates: start: 20070207

REACTIONS (3)
  - DIARRHOEA [None]
  - MIDDLE INSOMNIA [None]
  - SOMNOLENCE [None]
